FAERS Safety Report 17004135 (Version 4)
Quarter: 2020Q1

REPORT INFORMATION
  Report Type: Spontaneous
  Country: US (occurrence: US)
  Receive Date: 20191107
  Receipt Date: 20200212
  Transmission Date: 20200409
  Serious: Yes (Hospitalization)
  Sender: FDA-Public Use
  Company Number: US-009507513-1911USA000813

PATIENT
  Age: 24 Year
  Sex: Male
  Weight: 160 kg

DRUGS (3)
  1. PRINIVIL [Suspect]
     Active Substance: LISINOPRIL
     Dosage: UNK
     Route: 048
  2. AMLODIPINE [Suspect]
     Active Substance: AMLODIPINE BESYLATE
     Dosage: 40 TABLETS, UNKNOWN DOSE
     Route: 048
  3. METOPROLOL. [Suspect]
     Active Substance: METOPROLOL
     Dosage: UNK

REACTIONS (1)
  - Intentional overdose [Unknown]
